FAERS Safety Report 8555673-9 (Version None)
Quarter: 2012Q3

REPORT INFORMATION
  Report Type: 
  Country: None (occurrence: None)
  Receive Date: 20120801
  Receipt Date: 20120727
  Transmission Date: 20120928
  Serious: Yes (Other)
  Sender: FDA-Public Use
  Company Number: FR-AMGEN-FRASP2012046899

PATIENT
  Age: 57 Year
  Sex: Male

DRUGS (2)
  1. FOLFOX-4 [Concomitant]
     Indication: COLORECTAL CANCER
     Dosage: UNK
     Dates: start: 20120301
  2. VECTIBIX [Suspect]
     Indication: COLORECTAL CANCER
     Dosage: UNK
     Dates: start: 20120301

REACTIONS (2)
  - SKIN REACTION [None]
  - NECROTISING FASCIITIS [None]
